FAERS Safety Report 4667666-2 (Version None)
Quarter: 2005Q2

REPORT INFORMATION
  Report Type: 
  Country: None (occurrence: None)
  Receive Date: 20050520
  Receipt Date: 20050510
  Transmission Date: 20051028
  Serious: Yes (Death, Life-Threatening, Hospitalization, Other)
  Sender: FDA-Public Use
  Company Number: ES-ABBOTT-05P-144-0300220-00

PATIENT
  Age: 32 Year
  Sex: Male
  Weight: 85 kg

DRUGS (2)
  1. HUMIRA 40 MG/ 0.8 ML PRE-FILLED SYRINGE [Suspect]
     Indication: PSORIATIC ARTHROPATHY
     Route: 058
     Dates: start: 20050111, end: 20050405
  2. PHENYTOIN SODIUM [Concomitant]
     Indication: CONVULSION
     Route: 048
     Dates: start: 20040216, end: 20050408

REACTIONS (11)
  - ABNORMAL FAECES [None]
  - ANAEMIA [None]
  - COLITIS [None]
  - DIARRHOEA [None]
  - HEPATOMEGALY [None]
  - ORAL CANDIDIASIS [None]
  - PNEUMONIA [None]
  - RESPIRATORY DISTRESS [None]
  - SEPSIS [None]
  - TOXIC SKIN ERUPTION [None]
  - VOMITING [None]
